FAERS Safety Report 6527634-2 (Version None)
Quarter: 2010Q1

REPORT INFORMATION
  Report Type: 
  Country: None (occurrence: None)
  Receive Date: 20100105
  Receipt Date: 20091228
  Transmission Date: 20100710
  Serious: Yes (Hospitalization)
  Sender: FDA-Public Use
  Company Number: JP-ABBOTT-09P-087-0593182-00

PATIENT
  Sex: Female
  Weight: 47.4 kg

DRUGS (6)
  1. HUMIRA [Suspect]
     Indication: RHEUMATOID ARTHRITIS
     Route: 058
     Dates: start: 20090529, end: 20090723
  2. HUMIRA [Suspect]
     Route: 058
     Dates: start: 20090827, end: 20091020
  3. ISONIAZID [Suspect]
     Indication: ANTIBIOTIC PROPHYLAXIS
     Route: 048
     Dates: end: 20090723
  4. CELECOXIB [Concomitant]
     Indication: RHEUMATOID ARTHRITIS
  5. REBAMIPIDE [Concomitant]
     Indication: GASTRITIS PROPHYLAXIS
  6. FERROUS CITRATE [Concomitant]
     Indication: ANAEMIA

REACTIONS (1)
  - HEPATITIS [None]
